FAERS Safety Report 13912432 (Version 1)
Quarter: 2017Q3

REPORT INFORMATION
  Report Type: Spontaneous
  Country: NL (occurrence: NL)
  Receive Date: 20170828
  Receipt Date: 20170828
  Transmission Date: 20171127
  Serious: Yes (Other)
  Sender: FDA-Public Use
  Company Number: NL-CELGENEUS-NLD-20170804859

PATIENT
  Sex: Male
  Weight: 110 kg

DRUGS (1)
  1. OTEZLA [Suspect]
     Active Substance: APREMILAST
     Indication: PSORIASIS
     Dosage: 60 MG
     Route: 048
     Dates: start: 201610

REACTIONS (1)
  - Latent tuberculosis [Not Recovered/Not Resolved]

NARRATIVE: CASE EVENT DATE: 201708
